FAERS Safety Report 19678592 (Version 1)
Quarter: 2021Q3

REPORT INFORMATION
  Report Type: Spontaneous
  Country: US (occurrence: US)
  Receive Date: 20210809
  Receipt Date: 20210809
  Transmission Date: 20211014
  Serious: Yes (Death)
  Sender: FDA-Public Use
  Company Number: None

PATIENT
  Sex: Male
  Weight: 78.75 kg

DRUGS (11)
  1. EPINEPHRINE. [Concomitant]
     Active Substance: EPINEPHRINE
  2. MITOMYCIN. [Concomitant]
     Active Substance: MITOMYCIN
  3. DIPHENHYDRAMINE. [Concomitant]
     Active Substance: DIPHENHYDRAMINE
  4. HYDROCORTISONE. [Concomitant]
     Active Substance: HYDROCORTISONE
  5. FAMOTIDINE. [Concomitant]
     Active Substance: FAMOTIDINE
  6. AKYNZEO [Suspect]
     Active Substance: NETUPITANT\PALONOSETRON HYDROCHLORIDE
     Indication: ANAL CANCER
     Dosage: ?          OTHER FREQUENCY:ONCE EVERY 28 DAYS;?
     Route: 042
  7. FERRIC DERISOMALTOSE [Concomitant]
     Active Substance: FERRIC DERISOMALTOSE
  8. DEXAMETHASONE SOD PHOS ? NACL [Concomitant]
  9. LORAZEPAM. [Concomitant]
     Active Substance: LORAZEPAM
  10. FLUROURACIL [Concomitant]
     Active Substance: FLUOROURACIL
  11. METHYLPREDNISOLONE. [Concomitant]
     Active Substance: METHYLPREDNISOLONE

REACTIONS (1)
  - Death [None]
